FAERS Safety Report 15901932 (Version 5)
Quarter: 2019Q2

REPORT INFORMATION
  Report Type: Spontaneous
  Country: CZ (occurrence: CZ)
  Receive Date: 20190201
  Receipt Date: 20190531
  Transmission Date: 20190711
  Serious: Yes (Hospitalization, Other)
  Sender: FDA-Public Use
  Company Number: CZ-MYLANLABS-2018M1057917

PATIENT
  Age: 88 Year
  Sex: Male

DRUGS (23)
  1. SERTRALIN [Concomitant]
     Active Substance: SERTRALINE HYDROCHLORIDE
     Indication: DELUSION
     Dosage: 100 MILLIGRAM, QD
  2. METOPROLOL. [Concomitant]
     Active Substance: METOPROLOL
     Indication: HYPERTENSION
  3. QUETIAPINE MYLAN [Suspect]
     Active Substance: QUETIAPINE
     Indication: PRODUCT USED FOR UNKNOWN INDICATION
     Dosage: 12.5 MG, PER DAY
     Route: 048
  4. ROPINIROLE MYLAN [Suspect]
     Active Substance: ROPINIROLE HYDROCHLORIDE
     Indication: PARKINSON^S DISEASE
     Dosage: 8 MILLIGRAM, QD
  5. RIVASTIGMIN [Concomitant]
     Active Substance: RIVASTIGMINE
     Indication: DELUSION
     Dosage: 12 MILLIGRAM, QD
  6. RIVASTIGMIN [Concomitant]
     Active Substance: RIVASTIGMINE
     Indication: HALLUCINATION, VISUAL
  7. ACETYLSALICYLIC ACID [Concomitant]
     Active Substance: ASPIRIN
     Indication: PRODUCT USED FOR UNKNOWN INDICATION
  8. SERTRALINE [Concomitant]
     Active Substance: SERTRALINE HYDROCHLORIDE
     Dosage: DAILY DOSE: 100 MG/DAY
  9. SERTRALIN [Concomitant]
     Active Substance: SERTRALINE HYDROCHLORIDE
     Indication: VASCULAR DEMENTIA
  10. QUETIAPINE MYLAN [Suspect]
     Active Substance: QUETIAPINE
     Dosage: 25 UNK
     Route: 048
  11. LEVODOPA [Concomitant]
     Active Substance: LEVODOPA
     Indication: PRODUCT USED FOR UNKNOWN INDICATION
     Dosage: 750 MILLIGRAM, QD
  12. METOPROLOL. [Concomitant]
     Active Substance: METOPROLOL
     Indication: CARDIAC FAILURE
  13. QUETIAPINE MYLAN [Suspect]
     Active Substance: QUETIAPINE
     Dosage: 50 MILLIGRAM, QD
     Route: 065
  14. RIVASTIGMIN [Concomitant]
     Active Substance: RIVASTIGMINE
     Indication: DYSPHORIA
  15. SIMVASTATIN. [Concomitant]
     Active Substance: SIMVASTATIN
     Indication: PRODUCT USED FOR UNKNOWN INDICATION
     Dosage: UNK
  16. SERTRALINE [Concomitant]
     Active Substance: SERTRALINE HYDROCHLORIDE
     Indication: PRODUCT USED FOR UNKNOWN INDICATION
     Dosage: 150 MILLIGRAM, QD
     Route: 065
  17. RIVASTIGMIN [Concomitant]
     Active Substance: RIVASTIGMINE
     Indication: VASCULAR DEMENTIA
  18. PERINDOPRIL [Concomitant]
     Active Substance: PERINDOPRIL
     Indication: PRODUCT USED FOR UNKNOWN INDICATION
     Dosage: UNK
  19. QUETIAPINE MYLAN [Suspect]
     Active Substance: QUETIAPINE
     Dosage: 100 MILLIGRAM, QD
     Route: 048
  20. SERTRALIN [Concomitant]
     Active Substance: SERTRALINE HYDROCHLORIDE
     Indication: HALLUCINATION, VISUAL
  21. SERTRALIN [Concomitant]
     Active Substance: SERTRALINE HYDROCHLORIDE
     Indication: DYSPHORIA
  22. QUETIAPINE MYLAN [Suspect]
     Active Substance: QUETIAPINE
     Dosage: 13 MILLIGRAM, UNK
     Route: 048
  23. OXAZEPAM. [Suspect]
     Active Substance: OXAZEPAM
     Dosage: UNK

REACTIONS (14)
  - Sedation [Recovered/Resolved]
  - Hypotension [Recovered/Resolved]
  - Psychotic behaviour [Unknown]
  - Gait disturbance [Recovering/Resolving]
  - Parkinson^s disease [Unknown]
  - Weight decreased [Unknown]
  - Intentional product use issue [Unknown]
  - Confusional state [Recovered/Resolved]
  - Delusion [Recovered/Resolved]
  - Aggression [Unknown]
  - Dysphoria [Recovered/Resolved]
  - Depression [Unknown]
  - Therapeutic product effect incomplete [Unknown]
  - Hallucination, visual [Recovered/Resolved]
